FAERS Safety Report 12839593 (Version 1)
Quarter: 2016Q4

REPORT INFORMATION
  Report Type: Spontaneous
  Country: US (occurrence: US)
  Receive Date: 20161011
  Receipt Date: 20161011
  Transmission Date: 20170207
  Serious: Yes (Disabling)
  Sender: FDA-Public Use
  Company Number: None

PATIENT
  Age: 36 Year
  Sex: Female
  Weight: 126.45 kg

DRUGS (10)
  1. ARIPIPRAZOLE. [Suspect]
     Active Substance: ARIPIPRAZOLE
     Indication: ANXIETY
     Dosage: ?          QUANTITY:1 TABLET(S);?
     Route: 048
     Dates: start: 20160801, end: 20161006
  2. PRAZOSIN [Concomitant]
     Active Substance: PRAZOSIN
  3. TYLENOL [Concomitant]
     Active Substance: ACETAMINOPHEN
  4. ARIPIPRAZOLE. [Suspect]
     Active Substance: ARIPIPRAZOLE
     Indication: DEPRESSION
     Dosage: ?          QUANTITY:1 TABLET(S);?
     Route: 048
     Dates: start: 20160801, end: 20161006
  5. PRISTIQ EXTENDED-RELEASE [Concomitant]
     Active Substance: DESVENLAFAXINE SUCCINATE
  6. IBUPROFEN. [Concomitant]
     Active Substance: IBUPROFEN
  7. LAMOTRIGINE. [Concomitant]
     Active Substance: LAMOTRIGINE
  8. LORAZEPAM. [Concomitant]
     Active Substance: LORAZEPAM
  9. CLONAZEPAM. [Concomitant]
     Active Substance: CLONAZEPAM
  10. TOPIRAMATE. [Concomitant]
     Active Substance: TOPIRAMATE

REACTIONS (5)
  - Restlessness [None]
  - Oedema peripheral [None]
  - Peripheral swelling [None]
  - Blepharospasm [None]
  - Disturbance in attention [None]

NARRATIVE: CASE EVENT DATE: 20160903
